FAERS Safety Report 9669592 (Version 1)
Quarter: 2013Q4

REPORT INFORMATION
  Report Type: Spontaneous
  Country: SE (occurrence: SE)
  Receive Date: 20131105
  Receipt Date: 20131105
  Transmission Date: 20140711
  Serious: Yes (Hospitalization)
  Sender: FDA-Public Use
  Company Number: SE-TEVA-439704ISR

PATIENT
  Age: 77 Year
  Sex: Male

DRUGS (3)
  1. DOXYFERM [Suspect]
     Indication: PNEUMONIA
     Route: 048
     Dates: start: 201307
  2. AMOXICILLIN [Suspect]
     Indication: PNEUMONIA
     Route: 065
  3. PIPERACILLIN/TAZOBACTAM [Suspect]
     Indication: PNEUMONIA
     Route: 065
     Dates: start: 201307

REACTIONS (2)
  - Diarrhoea [Unknown]
  - Polyneuropathy [Unknown]
